FAERS Safety Report 5092364-3 (Version None)
Quarter: 2006Q3

REPORT INFORMATION
  Report Type: 
  Country: None (occurrence: None)
  Receive Date: 20060825
  Receipt Date: 20060807
  Transmission Date: 20061208
  Serious: Yes (Hospitalization, Other)
  Sender: FDA-Public Use
  Company Number: US200607001081

PATIENT
  Sex: Female
  Weight: 81.6 kg

DRUGS (1)
  1. ZYPREXA [Suspect]
     Dates: start: 19961001

REACTIONS (3)
  - DIABETES MELLITUS [None]
  - PANCREATITIS [None]
  - VASCULAR BYPASS GRAFT [None]
